FAERS Safety Report 23283926 (Version 8)
Quarter: 2024Q2

REPORT INFORMATION
  Report Type: Spontaneous
  Country: GB (occurrence: GB)
  Receive Date: 20231211
  Receipt Date: 20240621
  Transmission Date: 20240716
  Serious: Yes (Hospitalization, Other)
  Sender: FDA-Public Use
  Company Number: GB-009507513-2312GBR000229

PATIENT
  Sex: Female

DRUGS (38)
  1. CARBOPLATIN [Suspect]
     Active Substance: CARBOPLATIN
     Indication: Metaplastic breast carcinoma
     Dosage: UNK, CYCLIC (4 CYCLES)
     Route: 065
     Dates: start: 2023, end: 2023
  2. CARBOPLATIN [Suspect]
     Active Substance: CARBOPLATIN
     Indication: Metaplastic breast carcinoma
     Dosage: UNK, CYCLIC (4 CYCLES)
     Route: 065
     Dates: start: 2023, end: 2023
  3. CARBOPLATIN [Suspect]
     Active Substance: CARBOPLATIN
     Indication: Triple negative breast cancer
     Dosage: UNK, CYCLIC (4 CYCLES)
     Route: 065
     Dates: start: 2023, end: 2023
  4. CARBOPLATIN [Suspect]
     Active Substance: CARBOPLATIN
     Dosage: UNK, CYCLIC (4 CYCLES)
     Route: 065
     Dates: start: 2023
  5. CARBOPLATIN [Suspect]
     Active Substance: CARBOPLATIN
     Dosage: UNK, CYCLIC (4 CYCLES)
     Route: 065
  6. CYCLOPHOSPHAMIDE [Suspect]
     Active Substance: CYCLOPHOSPHAMIDE
     Indication: Triple negative breast cancer
     Dosage: UNK, CYCLIC (4 CYCLES), DOSAGE FORM: POWDER FOR SOLUTION FOR INJECTION
     Route: 065
     Dates: start: 2023
  7. CYCLOPHOSPHAMIDE [Suspect]
     Active Substance: CYCLOPHOSPHAMIDE
     Indication: Metaplastic breast carcinoma
     Dosage: (UNK, CYCLIC (4 CYCLES
     Route: 065
  8. CYCLOPHOSPHAMIDE [Suspect]
     Active Substance: CYCLOPHOSPHAMIDE
     Indication: Metaplastic breast carcinoma
     Dosage: (UNK, CYCLIC (4 CYCLES
     Route: 065
  9. CYCLOPHOSPHAMIDE [Suspect]
     Active Substance: CYCLOPHOSPHAMIDE
     Indication: Metaplastic breast carcinoma
     Dosage: (UNK, CYCLIC (4 CYCLES
     Route: 065
  10. CYCLOPHOSPHAMIDE [Suspect]
     Active Substance: CYCLOPHOSPHAMIDE
     Dosage: (UNK, CYCLIC (4 CYCLES
     Route: 065
  11. CYCLOPHOSPHAMIDE [Suspect]
     Active Substance: CYCLOPHOSPHAMIDE
     Dosage: (UNK, CYCLIC (4 CYCLES
     Route: 065
  12. CYCLOPHOSPHAMIDE [Suspect]
     Active Substance: CYCLOPHOSPHAMIDE
     Dosage: (UNK, CYCLIC (4 CYCLES
     Route: 065
  13. CYCLOPHOSPHAMIDE [Suspect]
     Active Substance: CYCLOPHOSPHAMIDE
     Dosage: (UNK, CYCLIC (4 CYCLES
     Route: 065
  14. CYCLOPHOSPHAMIDE [Suspect]
     Active Substance: CYCLOPHOSPHAMIDE
     Dosage: (UNK, CYCLIC (4 CYCLES
     Route: 065
  15. CYCLOPHOSPHAMIDE [Suspect]
     Active Substance: CYCLOPHOSPHAMIDE
     Dosage: (UNK, CYCLIC (4 CYCLES
     Route: 065
  16. CYCLOPHOSPHAMIDE [Suspect]
     Active Substance: CYCLOPHOSPHAMIDE
     Dosage: (UNK, CYCLIC (4 CYCLES
     Route: 065
  17. CYCLOPHOSPHAMIDE [Suspect]
     Active Substance: CYCLOPHOSPHAMIDE
     Dosage: (UNK, CYCLIC (4 CYCLES
     Route: 065
  18. EPIRUBICIN [Suspect]
     Active Substance: EPIRUBICIN
     Indication: Triple negative breast cancer
     Dosage: UNK (4 CYCLES)
     Route: 065
     Dates: start: 2023
  19. EPIRUBICIN [Suspect]
     Active Substance: EPIRUBICIN
     Indication: Metaplastic breast carcinoma
     Dosage: UNK
     Route: 065
     Dates: start: 2023
  20. EPIRUBICIN [Suspect]
     Active Substance: EPIRUBICIN
     Indication: Metaplastic breast carcinoma
     Dosage: UNK, CYCLIC (4 CYCLES)
     Route: 065
  21. EPIRUBICIN [Suspect]
     Active Substance: EPIRUBICIN
     Indication: Metaplastic breast carcinoma
     Dosage: UNK, CYCLIC (4 CYCLES)
     Route: 065
  22. EPIRUBICIN [Suspect]
     Active Substance: EPIRUBICIN
     Dosage: UNK, CYCLIC (4 CYCLES)
     Route: 065
  23. EPIRUBICIN [Suspect]
     Active Substance: EPIRUBICIN
     Dosage: UNK, CYCLIC (4 CYCLES)
     Route: 065
  24. EPIRUBICIN [Suspect]
     Active Substance: EPIRUBICIN
     Dosage: UNK, CYCLIC (4 CYCLES)
     Route: 065
  25. EPIRUBICIN [Suspect]
     Active Substance: EPIRUBICIN
     Dosage: UNK, CYCLIC (4 CYCLES)
     Route: 065
  26. EPIRUBICIN [Suspect]
     Active Substance: EPIRUBICIN
     Dosage: UNK, CYCLIC (4 CYCLES)
     Route: 065
  27. EPIRUBICIN [Suspect]
     Active Substance: EPIRUBICIN
     Dosage: UNK, CYCLIC (4 CYCLES)
     Route: 065
  28. EPIRUBICIN [Suspect]
     Active Substance: EPIRUBICIN
     Dosage: UNK, CYCLIC (4 CYCLES)
     Route: 065
  29. EPIRUBICIN [Suspect]
     Active Substance: EPIRUBICIN
     Dosage: UNK, CYCLIC (4 CYCLES)
     Route: 065
  30. KEYTRUDA [Suspect]
     Active Substance: PEMBROLIZUMAB
     Indication: Triple negative breast cancer
     Dosage: UNK, CYCLIC (4 CYCLES), START DATE: 2023, DOSAGE FORM: POWDER FOR INJECTION
     Route: 065
     Dates: start: 2023, end: 20230523
  31. KEYTRUDA [Suspect]
     Active Substance: PEMBROLIZUMAB
     Dosage: UNK, CYCLIC (4 CYCLES)
     Route: 065
     Dates: start: 2023
  32. KEYTRUDA [Suspect]
     Active Substance: PEMBROLIZUMAB
     Dosage: UNK, CYCLIC (4 CYCLES)
     Route: 065
     Dates: start: 2023
  33. PACLITAXEL [Suspect]
     Active Substance: PACLITAXEL
     Indication: Triple negative breast cancer
     Dosage: UNK, CYCLIC (4 CYCLES)
     Route: 065
     Dates: start: 2023, end: 2023
  34. PACLITAXEL [Suspect]
     Active Substance: PACLITAXEL
     Indication: Metaplastic breast carcinoma
     Dosage: CYCLIC (4 CYCLES)
     Route: 065
  35. PACLITAXEL [Suspect]
     Active Substance: PACLITAXEL
     Dosage: CYCLIC (4 CYCLES)
     Route: 065
  36. PACLITAXEL [Suspect]
     Active Substance: PACLITAXEL
     Dosage: CYCLIC (4 CYCLES)
     Route: 065
  37. PACLITAXEL [Suspect]
     Active Substance: PACLITAXEL
     Dosage: CYCLIC (4 CYCLES)
     Route: 065
  38. PACLITAXEL [Suspect]
     Active Substance: PACLITAXEL
     Indication: Metaplastic breast carcinoma
     Dosage: UNK
     Route: 065
     Dates: start: 2023

REACTIONS (5)
  - Pneumonitis [Recovering/Resolving]
  - Hypertransaminasaemia [Recovering/Resolving]
  - Hepatic function abnormal [Recovering/Resolving]
  - Therapy non-responder [Unknown]
  - Drug ineffective [Unknown]

NARRATIVE: CASE EVENT DATE: 20230101
